FAERS Safety Report 5279849-1 (Version None)
Quarter: 2007Q1

REPORT INFORMATION
  Report Type: 
  Country: None (occurrence: None)
  Receive Date: 20061218
  Receipt Date: 20060619
  Transmission Date: 20070707
  Serious: Yes (Other)
  Sender: FDA-Public Use
  Company Number: US200606004051

PATIENT
  Age: 78 Year
  Sex: Female
  Weight: 77.1 kg

DRUGS (11)
  1. HUMALOG LISPRO (LISPRO LISPRO UNKNOWN FORMULATION) UNKNOWN [Suspect]
     Indication: DIABETES MELLITUS NON-INSULIN-DEPENDENT
     Dosage: SEE IMAGE
     Route: 058
     Dates: end: 20060531
  2. HUMALOG LISPRO (LISPRO LISPRO UNKNOWN FORMULATION) UNKNOWN [Suspect]
     Indication: DIABETES MELLITUS NON-INSULIN-DEPENDENT
     Dosage: SEE IMAGE
     Route: 058
     Dates: start: 20060601
  3. HUMULIN N [Suspect]
     Indication: DIABETES MELLITUS NON-INSULIN-DEPENDENT
     Dosage: 36 U, AS NEEDED, SUBCUTANEOUS
     Route: 058
  4. BYETTA (EXENATIDE) PEN,DISPOSABLE [Concomitant]
  5. AVANDIA (RISIGLITAZONE MALEATE) [Concomitant]
  6. ENALAPRIL MALEATE [Concomitant]
  7. ZOCOR [Concomitant]
  8. ZETIA [Concomitant]
  9. TOPAMAX /AUS/ (TOPIRAMATE) [Concomitant]
  10. METOPROLOL TARTRATE [Concomitant]
  11. ASPIRIN [Concomitant]

REACTIONS (6)
  - ASTHENIA [None]
  - BLOOD GLUCOSE DECREASED [None]
  - DIZZINESS [None]
  - FALL [None]
  - LOSS OF CONSCIOUSNESS [None]
  - MALAISE [None]
